FAERS Safety Report 4777466-0 (Version None)
Quarter: 2005Q3

REPORT INFORMATION
  Report Type: 
  Country: None (occurrence: None)
  Receive Date: 20050923
  Receipt Date: 20050304
  Transmission Date: 20060218
  Serious: Yes (Other)
  Sender: FDA-Public Use
  Company Number: PHEH2005US02743

PATIENT
  Age: 72 Year
  Sex: Female

DRUGS (12)
  1. ZOMETA [Suspect]
     Indication: BREAST CANCER METASTATIC
     Dosage: 4 MG, QMO
     Dates: start: 20030415, end: 20040914
  2. ARIMIDEX [Concomitant]
  3. TAXOL [Concomitant]
  4. HERCEPTIN [Concomitant]
  5. TAMOXIFEN CITRATE [Concomitant]
  6. PAXIL [Concomitant]
  7. ZOCOR [Concomitant]
  8. SYNTHROID [Concomitant]
  9. LOVENOX [Concomitant]
  10. MULTI-VITAMINS [Concomitant]
  11. VITAMIN D [Concomitant]
  12. CALCIUM GLUCONATE [Concomitant]

REACTIONS (22)
  - ALPHA HAEMOLYTIC STREPTOCOCCAL INFECTION [None]
  - ASEPTIC NECROSIS BONE [None]
  - BONE DEBRIDEMENT [None]
  - BONE DISORDER [None]
  - BONE INFECTION [None]
  - BONE LESION [None]
  - DENTAL OPERATION [None]
  - GINGIVAL INFECTION [None]
  - GINGIVITIS [None]
  - INCISIONAL DRAINAGE [None]
  - JAW DISORDER [None]
  - LYMPHADENOPATHY [None]
  - OEDEMA MOUTH [None]
  - OSTEITIS [None]
  - OSTEOMYELITIS [None]
  - OSTEONECROSIS [None]
  - PAIN [None]
  - PYREXIA [None]
  - SOFT TISSUE INFECTION [None]
  - SWELLING [None]
  - TOOTH ABSCESS [None]
  - TOOTH EXTRACTION [None]
